FAERS Safety Report 8924735 (Version 6)
Quarter: 2019Q2

REPORT INFORMATION
  Report Type: Spontaneous
  Country: BR (occurrence: BR)
  Receive Date: 20121126
  Receipt Date: 20190618
  Transmission Date: 20190711
  Serious: Yes (Other)
  Sender: FDA-Public Use
  Company Number: BR-PFIZER INC-2012039070

PATIENT
  Age: 44 Year
  Sex: Male
  Weight: 73 kg

DRUGS (10)
  1. LYRICA [Interacting]
     Active Substance: PREGABALIN
     Indication: NEUROPATHY PERIPHERAL
     Dosage: UNK
     Route: 048
  2. LYRICA [Interacting]
     Active Substance: PREGABALIN
     Indication: NEURALGIA
     Dosage: UNK, 3X/DAY IN THE MORNING, IN THE AFTERNOON, AT NIGHT
  3. LYRICA [Interacting]
     Active Substance: PREGABALIN
     Indication: POLYNEUROPATHY
  4. LINSEED [Concomitant]
     Active Substance: HERBALS\LINSEED OIL
     Indication: DRY EYE
     Dosage: UNK
  5. LYRICA [Interacting]
     Active Substance: PREGABALIN
     Indication: BURNING SENSATION
     Dosage: 300 MG (75MG IN THE MORNING, 75MG AT AFTERNOON AND 2 TABLETS OF 75MG AT NIGHT), DAILY
     Route: 048
  6. LORAX (LORAZEPAM) [Interacting]
     Active Substance: LORAZEPAM
     Indication: INSOMNIA
     Dosage: 4 MG (TWO TABLETS OF 2MG), DAILY (PER NIGHT)
  7. APRAZ [Interacting]
     Active Substance: ALPRAZOLAM
     Indication: SEDATIVE THERAPY
     Dosage: 2 MG, 1X/DAY, ( IN THE MORNING AND 1 MG IN THE AFTERNOON)
     Dates: start: 2011
  8. THIAMINE HYDROCHLORIDE. [Concomitant]
     Active Substance: THIAMINE HYDROCHLORIDE
     Dosage: UNK
  9. LORAX (LORAZEPAM) [Interacting]
     Active Substance: LORAZEPAM
     Indication: SEDATIVE THERAPY
  10. LYRICA [Suspect]
     Active Substance: PREGABALIN
     Indication: ARTHRALGIA
     Dosage: 225 MG, DAILY (3 CAPSULES OF 75MG DAILY)
     Route: 048
     Dates: start: 2011

REACTIONS (50)
  - Sympathetic nerve injury [Unknown]
  - Hunger [Recovered/Resolved]
  - Intervertebral disc protrusion [Unknown]
  - Drug dependence [Not Recovered/Not Resolved]
  - Faeces hard [Not Recovered/Not Resolved]
  - Urinary incontinence [Not Recovered/Not Resolved]
  - Drug ineffective [Unknown]
  - Feeling drunk [Not Recovered/Not Resolved]
  - Nausea [Not Recovered/Not Resolved]
  - Poor quality sleep [Not Recovered/Not Resolved]
  - Chest pain [Not Recovered/Not Resolved]
  - Nervousness [Not Recovered/Not Resolved]
  - Scar [Not Recovered/Not Resolved]
  - Dysphagia [Not Recovered/Not Resolved]
  - Balance disorder [Not Recovered/Not Resolved]
  - Human T-cell lymphotropic virus type I infection [Unknown]
  - Insomnia [Not Recovered/Not Resolved]
  - Pain [Not Recovered/Not Resolved]
  - Haematoma [Not Recovered/Not Resolved]
  - Pruritus [Not Recovered/Not Resolved]
  - Homicidal ideation [Not Recovered/Not Resolved]
  - Myelitis [Unknown]
  - Feeling cold [Not Recovered/Not Resolved]
  - Feeling abnormal [Not Recovered/Not Resolved]
  - Gait disturbance [Not Recovered/Not Resolved]
  - Skin discolouration [Not Recovered/Not Resolved]
  - Blister [Not Recovered/Not Resolved]
  - Sciatic nerve injury [Unknown]
  - Intentional product use issue [Unknown]
  - Fatigue [Not Recovered/Not Resolved]
  - Nasal congestion [Not Recovered/Not Resolved]
  - Suicidal ideation [Not Recovered/Not Resolved]
  - Constipation [Not Recovered/Not Resolved]
  - Expired product administered [Unknown]
  - Weight decreased [Not Recovered/Not Resolved]
  - Road traffic accident [Unknown]
  - Spinal pain [Unknown]
  - Potentiating drug interaction [Unknown]
  - Asthenia [Unknown]
  - Pollakiuria [Not Recovered/Not Resolved]
  - Agitation [Not Recovered/Not Resolved]
  - Rhinitis [Not Recovered/Not Resolved]
  - Defaecation urgency [Not Recovered/Not Resolved]
  - Dizziness [Not Recovered/Not Resolved]
  - Anxiety [Not Recovered/Not Resolved]
  - Cardiac discomfort [Not Recovered/Not Resolved]
  - Muscle atrophy [Not Recovered/Not Resolved]
  - Bruxism [Not Recovered/Not Resolved]
  - Fall [Not Recovered/Not Resolved]
  - Anger [Unknown]

NARRATIVE: CASE EVENT DATE: 2011
